FAERS Safety Report 5011507-0 (Version None)
Quarter: 2006Q2

REPORT INFORMATION
  Report Type: 
  Country: None (occurrence: None)
  Receive Date: 20060524
  Receipt Date: 20060511
  Transmission Date: 20061013
  Serious: Yes (Other)
  Sender: FDA-Public Use
  Company Number: A-US2006-12257

PATIENT
  Age: 68 Year
  Sex: Female
  Weight: 55.8 kg

DRUGS (13)
  1. TRACLEER [Suspect]
     Indication: PULMONARY HYPERTENSION
     Dosage: 62.5 MG, BID, ORAL
     Route: 048
     Dates: start: 20051201, end: 20060103
  2. ADALAT [Concomitant]
  3. ALBUTEROL [Concomitant]
  4. DIAZEPAM [Concomitant]
  5. FLUOXETINE [Concomitant]
  6. NEURONTIN [Concomitant]
  7. PRILOSEC [Concomitant]
  8. WARFARIN SODIUM [Concomitant]
  9. NITRO PATCH (GLYCERYL TRINITRATE) [Concomitant]
  10. NITRO-OINTMENT (PARACETAMOL) [Concomitant]
  11. BETACAROTENE [Concomitant]
  12. DIPYRIDAMOLE [Concomitant]
  13. ACETAMINOPHEN [Concomitant]

REACTIONS (2)
  - MOUTH ULCERATION [None]
  - SWELLING FACE [None]
